FAERS Safety Report 8895608 (Version 2)
Quarter: 2014Q3

REPORT INFORMATION
  Report Type: Report from Study
  Country: US (occurrence: US)
  Receive Date: 20121108
  Receipt Date: 20140822
  Transmission Date: 20150326
  Serious: Yes (Death, Other)
  Sender: FDA-Public Use
  Company Number: US-ROCHE-1131496

PATIENT
  Age: 44 Year
  Sex: Male

DRUGS (3)
  1. RITUXAN [Suspect]
     Active Substance: RITUXIMAB
     Indication: NON-HODGKIN^S LYMPHOMA
  2. RITUXAN [Suspect]
     Active Substance: RITUXIMAB
     Indication: MALIGNANT LYMPHOID NEOPLASM
     Route: 042
  3. RITUXAN [Suspect]
     Active Substance: RITUXIMAB
     Indication: LYMPHOMA

REACTIONS (2)
  - Cerebrovascular accident [Unknown]
  - Death [Fatal]

NARRATIVE: CASE EVENT DATE: 200507
